FAERS Safety Report 23288085 (Version 3)
Quarter: 2024Q1

REPORT INFORMATION
  Report Type: Spontaneous
  Country: CN (occurrence: CN)
  Receive Date: 20231212
  Receipt Date: 20240125
  Transmission Date: 20240410
  Serious: Yes (Hospitalization, Disabling, Other)
  Sender: FDA-Public Use
  Company Number: CN-PFIZER INC-PV202300199252

PATIENT
  Age: 48 Year
  Sex: Male

DRUGS (1)
  1. VORICONAZOLE [Suspect]
     Active Substance: VORICONAZOLE
     Dosage: 50 MG, 1X/DAY
     Route: 048
     Dates: start: 20231013, end: 20231013

REACTIONS (2)
  - Deafness [Not Recovered/Not Resolved]
  - Optic neuritis [Recovering/Resolving]

NARRATIVE: CASE EVENT DATE: 20231015
